FAERS Safety Report 9059904 (Version 1)
Quarter: 2013Q1

REPORT INFORMATION
  Report Type: Spontaneous
  Country: US (occurrence: US)
  Receive Date: 20130212
  Receipt Date: 20130212
  Transmission Date: 20140127
  Serious: Yes (Other)
  Sender: FDA-Public Use
  Company Number: US-ROXANE LABORATORIES, INC.-2013-BI-02852GD

PATIENT
  Age: 34 Year
  Sex: Female

DRUGS (9)
  1. IBUPROFEN [Suspect]
     Indication: MUSCULOSKELETAL CHEST PAIN
  2. CITALOPRAM [Suspect]
     Indication: GENERALISED ANXIETY DISORDER
     Dosage: 20 MG
  3. CITALOPRAM [Suspect]
     Dosage: 40 MG
  4. LORAZEPAM [Concomitant]
     Dosage: 2 MG
  5. HYDROXYZINE PAMOATE [Concomitant]
     Dosage: 50-100MG
  6. ALBUTEROL [Concomitant]
     Indication: COUGH
     Dosage: PRN, 2PUFFS EVERY 4-6HOURS
     Route: 055
  7. ALBUTEROL [Concomitant]
     Indication: WHEEZING
  8. ESTRADIOL [Concomitant]
     Dosage: 1 MG
  9. METHOCARBAMOL [Concomitant]
     Dosage: 500-1000MG 4 TIMES DAILY AS NEEDED

REACTIONS (4)
  - Increased tendency to bruise [Unknown]
  - Drug interaction [Unknown]
  - Ecchymosis [Unknown]
  - Impaired healing [Unknown]
